FAERS Safety Report 6935735-X (Version None)
Quarter: 2010Q3

REPORT INFORMATION
  Report Type: 
  Country: None (occurrence: None)
  Receive Date: 20100819
  Receipt Date: 20100819
  Transmission Date: 20110219
  Serious: No
  Sender: FDA-Public Use
  Company Number: None

PATIENT
  Sex: Female
  Weight: 83.4619 kg

DRUGS (5)
  1. PREVACID [Suspect]
     Dosage: 30MG DAILY PO
     Route: 048
     Dates: start: 20090925, end: 20100217
  2. CONCERTA [Concomitant]
  3. WELLBUTRIN XL [Concomitant]
  4. YASMIN [Concomitant]
  5. ULTANE [Concomitant]

REACTIONS (1)
  - DRUG INEFFECTIVE [None]
